FAERS Safety Report 23201295 (Version 3)
Quarter: 2024Q1

REPORT INFORMATION
  Report Type: Spontaneous
  Country: US (occurrence: US)
  Receive Date: 20231118
  Receipt Date: 20240326
  Transmission Date: 20240410
  Serious: No
  Sender: FDA-Public Use
  Company Number: US-SA-SAC20231114000538

PATIENT
  Age: 35 Year
  Sex: Male

DRUGS (1)
  1. DUPIXENT [Suspect]
     Active Substance: DUPILUMAB
     Indication: Dermatitis atopic
     Dosage: 300 MG, QOW
     Route: 058
     Dates: start: 20230801

REACTIONS (8)
  - Dry skin [Unknown]
  - Skin fissures [Unknown]
  - Pruritus [Unknown]
  - Blepharospasm [Unknown]
  - Pharyngitis streptococcal [Unknown]
  - Eye movement disorder [Unknown]
  - Dermatitis atopic [Unknown]
  - Therapeutic response shortened [Unknown]
